FAERS Safety Report 6567581-3 (Version None)
Quarter: 2010Q1

REPORT INFORMATION
  Report Type: 
  Country: None (occurrence: None)
  Receive Date: 20100202
  Receipt Date: 20091013
  Transmission Date: 20100710
  Serious: Yes (Death)
  Sender: FDA-Public Use
  Company Number: PHHY2009DK60589

PATIENT
  Sex: Female
  Weight: 85.3 kg

DRUGS (12)
  1. LEPONEX [Suspect]
     Indication: MENTAL DISORDER
     Dosage: 800 MG/DAY
     Route: 048
     Dates: start: 20080206
  2. ERYTHROMYCIN [Suspect]
     Dosage: 500 MG, QD
     Route: 048
     Dates: start: 20090507
  3. RISPERIDONE [Suspect]
     Indication: ANTIPSYCHOTIC DRUG LEVEL THERAPEUTIC
     Dosage: 8 MG/DAY
     Route: 048
  4. LYSANTIN [Suspect]
     Indication: ADVERSE DRUG REACTION
     Dosage: 100 MG/DAY
     Route: 048
     Dates: start: 20060206
  5. RIVOTRIL [Suspect]
     Indication: SEDATIVE THERAPY
     Dosage: 2 MG, QD
     Route: 048
     Dates: start: 20090416
  6. ZUCLOPENTHIXOL [Suspect]
     Indication: MENTAL DISORDER
     Dosage: 20 MG, QD
     Route: 048
     Dates: start: 20090206
  7. IMIPRAMINE [Suspect]
     Indication: SALIVARY HYPERSECRETION
     Dosage: 100 MG, QD
     Route: 048
     Dates: start: 20080206
  8. TRUXAL [Suspect]
     Indication: MENTAL DISORDER
     Dosage: PRN
     Route: 048
     Dates: start: 20090318
  9. ACTILAX [Suspect]
     Indication: LAXATIVE SUPPORTIVE CARE
     Dosage: 15 DROPS, UNK
     Route: 048
     Dates: start: 20070821
  10. PINEX [Concomitant]
     Indication: PAIN
     Dosage: 3 G, QD
     Dates: start: 19690919
  11. LACTULOSE [Concomitant]
     Indication: LAXATIVE SUPPORTIVE CARE
     Dosage: 15 ML, QD
     Dates: start: 20041111
  12. MULTITABS [Concomitant]
     Dosage: UNK
     Dates: start: 20041111

REACTIONS (1)
  - DEATH [None]
